APPROVED DRUG PRODUCT: DILTIAZEM HYDROCHLORIDE
Active Ingredient: DILTIAZEM HYDROCHLORIDE
Strength: 360MG
Dosage Form/Route: CAPSULE, EXTENDED RELEASE;ORAL
Application: N020939 | Product #005
Applicant: BIOVAIL LABORATORIES INC
Approved: Sep 14, 2001 | RLD: No | RS: No | Type: DISCN